FAERS Safety Report 7912514-8 (Version None)
Quarter: 2011Q4

REPORT INFORMATION
  Report Type: 
  Country: None (occurrence: None)
  Receive Date: 20111114
  Receipt Date: 20111111
  Transmission Date: 20120403
  Serious: No
  Sender: FDA-Public Use
  Company Number: US-PFIZER INC-2011277389

PATIENT
  Sex: Female
  Weight: 95.24 kg

DRUGS (3)
  1. LIPITOR [Suspect]
     Indication: BLOOD CHOLESTEROL ABNORMAL
     Dosage: UNK
  2. LIPITOR [Suspect]
     Dosage: 10 MG,DAILY
  3. METOPROLOL [Concomitant]
     Indication: HYPERTENSION
     Dosage: 50 MG,DAILY

REACTIONS (1)
  - DIARRHOEA [None]
